FAERS Safety Report 13331328 (Version 1)
Quarter: 2017Q1

REPORT INFORMATION
  Report Type: Spontaneous
  Country: US (occurrence: US)
  Receive Date: 20170313
  Receipt Date: 20170313
  Transmission Date: 20170428
  Serious: Yes (Other)
  Sender: FDA-Public Use
  Company Number: None

PATIENT
  Age: 47 Year
  Sex: Female
  Weight: 77.18 kg

DRUGS (1)
  1. MIRENA [Suspect]
     Active Substance: LEVONORGESTREL
     Indication: CONTRACEPTION
     Dosage: INTRA-UTERINE
     Route: 067
     Dates: start: 20161115, end: 20170313

REACTIONS (5)
  - Sinusitis [None]
  - Swelling face [None]
  - Vision blurred [None]
  - Peripheral swelling [None]
  - Eye swelling [None]

NARRATIVE: CASE EVENT DATE: 20170313
